FAERS Safety Report 10673810 (Version 3)
Quarter: 2015Q3

REPORT INFORMATION
  Report Type: Report from Study
  Country: BE (occurrence: BE)
  Receive Date: 20141224
  Receipt Date: 20150722
  Transmission Date: 20151125
  Serious: Yes (Hospitalization, Disabling)
  Sender: FDA-Public Use
  Company Number: BE-ROCHE-1508030

PATIENT
  Age: 73 Year
  Sex: Female
  Weight: 50 kg

DRUGS (14)
  1. TRASTUZUMAB [Suspect]
     Active Substance: TRASTUZUMAB
     Indication: HER-2 POSITIVE BREAST CANCER
     Dosage: LOADING DOSE
     Route: 042
     Dates: start: 20130819, end: 20130819
  2. TEMESTA EXPIDET [Concomitant]
     Route: 065
     Dates: start: 20140724
  3. FLIXOTIDE [Concomitant]
     Active Substance: FLUTICASONE PROPIONATE
     Route: 065
     Dates: start: 20140611
  4. ZOCOR [Concomitant]
     Active Substance: SIMVASTATIN
     Route: 065
     Dates: start: 20141117
  5. L-THYROXINE [Concomitant]
     Active Substance: LEVOTHYROXINE
     Route: 065
     Dates: start: 2007
  6. COMBIVENT [Concomitant]
     Active Substance: ALBUTEROL SULFATE\IPRATROPIUM BROMIDE
     Route: 065
     Dates: start: 20140611
  7. ACETYLCYSTEIN [Concomitant]
     Active Substance: ACETYLCYSTEINE
     Route: 065
     Dates: start: 20141120
  8. MEDROL [Concomitant]
     Active Substance: METHYLPREDNISOLONE
     Route: 065
     Dates: start: 20141117
  9. TRASTUZUMAB [Suspect]
     Active Substance: TRASTUZUMAB
     Dosage: MAINTAINANCE DOSE. LAST DOSE (264 MG) PRIOR TO SAE ON 19/MAY/2014.
     Route: 042
     Dates: end: 20140519
  10. NEDITOL [Concomitant]
     Route: 065
     Dates: start: 20141117
  11. ASAFLOW [Concomitant]
     Active Substance: ASPIRIN
     Route: 065
     Dates: start: 20141117
  12. ACTRAPID [Concomitant]
     Active Substance: INSULIN HUMAN
     Dosage: 100 UI, PEN FILL
     Route: 065
     Dates: start: 20141120
  13. PERTUZUMAB [Suspect]
     Active Substance: PERTUZUMAB
     Indication: HER-2 POSITIVE BREAST CANCER
     Dosage: LOADING DOSE.
     Route: 042
     Dates: start: 20130819, end: 20130819
  14. PERTUZUMAB [Suspect]
     Active Substance: PERTUZUMAB
     Dosage: MAINTENANCE DOSE. LAST DOSE PRIOR TO SAE ON 19/MAY/2014.
     Route: 042
     Dates: end: 20140519

REACTIONS (1)
  - Cerebrovascular accident [Not Recovered/Not Resolved]

NARRATIVE: CASE EVENT DATE: 20141117
